FAERS Safety Report 7955660-5 (Version None)
Quarter: 2011Q4

REPORT INFORMATION
  Report Type: 
  Country: None (occurrence: None)
  Receive Date: 20111204
  Receipt Date: 20111007
  Transmission Date: 20120403
  Serious: No
  Sender: FDA-Public Use
  Company Number: US-ALLERGAN-1113281US

PATIENT
  Age: 48 Year
  Sex: Female

DRUGS (2)
  1. VITAMIN B-12 [Concomitant]
     Indication: PRODUCT USED FOR UNKNOWN INDICATION
  2. ACZONE [Suspect]
     Indication: ACNE
     Dosage: 1 APPLICATION
     Route: 061

REACTIONS (1)
  - ALLERGY TO ARTHROPOD BITE [None]
